FAERS Safety Report 25730595 (Version 1)
Quarter: 2025Q3

REPORT INFORMATION
  Report Type: Spontaneous
  Country: US (occurrence: None)
  Receive Date: 20250827
  Receipt Date: 20250827
  Transmission Date: 20251021
  Serious: Yes (Hospitalization)
  Sender: FDA-CTU
  Company Number: None

PATIENT
  Sex: Male

DRUGS (19)
  1. LENALIDOMIDE [Suspect]
     Active Substance: LENALIDOMIDE
     Indication: Plasma cell myeloma
     Route: 048
     Dates: start: 20250215
  2. AMLODIPINE [Concomitant]
     Active Substance: AMLODIPINE BESYLATE
  3. AMLODIPINE [Concomitant]
     Active Substance: AMLODIPINE BESYLATE
  4. ASPIRIN CHW [Concomitant]
  5. BENZONATATE [Concomitant]
     Active Substance: BENZONATATE
  6. CALCIUM\VITAMIN D [Concomitant]
     Active Substance: CALCIUM\VITAMIN D
  7. CEPACOL LOZ EXTRA ST [Concomitant]
  8. DARZALEX SOL [Concomitant]
  9. DEXAMETHASON POW ACETATE [Concomitant]
  10. GUAIFENESIN LIQ [Concomitant]
  11. ACETAMINOPHEN\HYDROCODONE [Concomitant]
     Active Substance: ACETAMINOPHEN\HYDROCODONE
  12. SYMBICORT [Concomitant]
     Active Substance: BUDESONIDE\FORMOTEROL FUMARATE DIHYDRATE
  13. SENNOSIDES [Concomitant]
     Active Substance: SENNOSIDES
  14. ROSUVASTATIN [Concomitant]
     Active Substance: ROSUVASTATIN
  15. PROCHLORPER [Concomitant]
  16. MIRTAZAPINE [Concomitant]
     Active Substance: MIRTAZAPINE
  17. MIRALAX POW NF [Concomitant]
  18. VELCADE [Concomitant]
     Active Substance: BORTEZOMIB
  19. XALATAN SOL 0.005% [Concomitant]

REACTIONS (1)
  - Hospitalisation [None]
